FAERS Safety Report 10945001 (Version 2)
Quarter: 2015Q2

REPORT INFORMATION
  Report Type: Spontaneous
  Country: SE (occurrence: SE)
  Receive Date: 20150323
  Receipt Date: 20150520
  Transmission Date: 20150821
  Serious: Yes (Death, Other)
  Sender: FDA-Public Use
  Company Number: SE-JNJFOC-20150306248

PATIENT
  Sex: Male

DRUGS (16)
  1. ALVEDON [Concomitant]
     Active Substance: ACETAMINOPHEN
     Route: 065
  2. LAXOBERAL [Concomitant]
     Active Substance: SODIUM PICOSULFATE
     Route: 065
  3. OXYNORM [Concomitant]
     Active Substance: OXYCODONE HYDROCHLORIDE
     Route: 065
  4. SOBRIL [Concomitant]
     Active Substance: OXAZEPAM
     Route: 065
  5. FORLAX [Concomitant]
     Active Substance: POLYETHYLENE GLYCOL 4000
     Route: 065
  6. XARELTO [Suspect]
     Active Substance: RIVAROXABAN
     Indication: ATRIAL FIBRILLATION
     Route: 048
     Dates: start: 20130822
  7. KALEROID [Concomitant]
     Route: 065
  8. XARELTO [Suspect]
     Active Substance: RIVAROXABAN
     Indication: PROTHROMBIN LEVEL ABNORMAL
     Route: 048
     Dates: start: 20130822
  9. OXYCONTIN [Concomitant]
     Active Substance: OXYCODONE HYDROCHLORIDE
     Route: 065
  10. IMPUGAN [Concomitant]
     Active Substance: FUROSEMIDE
     Route: 065
  11. MIRTAZAPIN [Concomitant]
     Active Substance: MIRTAZAPINE
     Route: 065
  12. PRADAXA [Concomitant]
     Active Substance: DABIGATRAN ETEXILATE MESYLATE
     Route: 065
  13. OMEPRAZOLE. [Concomitant]
     Active Substance: OMEPRAZOLE
     Route: 065
  14. XARELTO [Suspect]
     Active Substance: RIVAROXABAN
     Indication: CEREBROVASCULAR ACCIDENT PROPHYLAXIS
     Route: 048
     Dates: start: 20130822
  15. DUROFERON [Concomitant]
     Active Substance: FERROUS SULFATE\FERROUS SULFATE, DRIED
     Route: 065
  16. SOTALOL. [Concomitant]
     Active Substance: SOTALOL
     Route: 065

REACTIONS (2)
  - Death [Fatal]
  - Wound haemorrhage [Unknown]
